FAERS Safety Report 9813412 (Version 1)
Quarter: 2014Q1

REPORT INFORMATION
  Report Type: Spontaneous
  Country: US (occurrence: None)
  Receive Date: 20140109
  Receipt Date: 20140109
  Transmission Date: 20141002
  Serious: Yes (Hospitalization)
  Sender: FDA-Public Use
  Company Number: 2115149

PATIENT
  Age: 40 Year
  Sex: Male

DRUGS (1)
  1. MORPHINE SULPHATE [Suspect]
     Indication: PAIN
     Dosage: 2.5 MG MILLIGRAM(S), 1 DAY, INTRATHECAL
     Route: 037

REACTIONS (3)
  - Hypopituitarism [None]
  - Mastectomy [None]
  - Fatigue [None]
